FAERS Safety Report 6031978-0 (Version None)
Quarter: 2009Q1

REPORT INFORMATION
  Report Type: 
  Country: None (occurrence: None)
  Receive Date: 20090107
  Receipt Date: 20081223
  Transmission Date: 20090719
  Serious: Yes (Other)
  Sender: FDA-Public Use
  Company Number: DSA_32961_2008

PATIENT
  Age: 55 Year
  Sex: Male

DRUGS (5)
  1. MONOTILDIEM /00489701/ (MONOTILDIEM (DILTIAZEM HYDROCHLORIDE) 300 MG ( [Suspect]
     Indication: HYPERTENSION
     Dosage: (600 MG MORNING AND 300 MG EVENING; NOT THE PRESCRIBED AMOUNT ORAL)
     Route: 048
     Dates: end: 20081223
  2. HYDROCHLOROTHIAZIDE W/LOSARTAN [Concomitant]
  3. ACETYLSALICYLATE LYSINE [Concomitant]
  4. FENOFIBRATE [Concomitant]
  5. ALLOPURINOL [Concomitant]

REACTIONS (4)
  - ABDOMINAL PAIN [None]
  - ACCIDENTAL OVERDOSE [None]
  - BRADYCARDIA [None]
  - HYPOTENSION [None]
